FAERS Safety Report 6297245-5 (Version None)
Quarter: 2009Q3

REPORT INFORMATION
  Report Type: 
  Country: None (occurrence: None)
  Receive Date: 20090805
  Receipt Date: 20070524
  Transmission Date: 20100115
  Serious: Yes (Other)
  Sender: FDA-Public Use
  Company Number: US-ASTRAZENECA-2006UW27766

PATIENT
  Age: 15745 Day
  Sex: Female
  Weight: 89.6 kg

DRUGS (25)
  1. SEROQUEL [Suspect]
     Indication: INSOMNIA
     Dosage: 50 MG - 600 MG DAILY
     Route: 048
     Dates: start: 20020503
  2. SEROQUEL [Suspect]
     Route: 048
  3. ABILIFY [Concomitant]
     Dosage: 10 MG- 50 MG DAILY
     Route: 048
     Dates: start: 20040513
  4. ZYPREXA [Concomitant]
  5. CELEXA [Concomitant]
     Indication: POST-TRAUMATIC STRESS DISORDER
  6. CELEXA [Concomitant]
     Indication: DEPRESSION
  7. CELEXA [Concomitant]
     Dosage: 20 MG- 60 MG DAILY
     Route: 048
     Dates: start: 20010318
  8. CELEXA [Concomitant]
     Dosage: 20 MG- 60 MG DAILY
     Route: 048
     Dates: start: 20010318
  9. LIBRIUM [Concomitant]
     Dosage: 25 MG THREE TIMES A DAY AND 50 MG AT NIGHT
     Route: 048
     Dates: start: 20040910
  10. VISTARIL [Concomitant]
     Dosage: 50  -100 MG DAILY
     Route: 048
     Dates: start: 20040910
  11. TRAZODONE HCL [Concomitant]
     Dosage: 300 - 350 MG AT NIGHT
     Route: 048
     Dates: start: 20040910
  12. PHENERGAN [Concomitant]
     Indication: NAUSEA
     Route: 048
     Dates: start: 20000425
  13. AMBIEN [Concomitant]
     Route: 048
     Dates: start: 19990916
  14. GLUCOPHAGE [Concomitant]
     Route: 048
     Dates: start: 20021105
  15. PROTONIX [Concomitant]
     Indication: ABDOMINAL DISCOMFORT
     Route: 048
     Dates: start: 20021107
  16. XANAX [Concomitant]
     Indication: ANXIETY
     Dosage: 0.5 - 1.5 MG DAILY
     Route: 048
     Dates: start: 19970410
  17. SERZONE [Concomitant]
     Route: 048
     Dates: start: 19980116
  18. ZOLOFT [Concomitant]
     Dosage: 25 - 50 MG DAILY
     Route: 048
     Dates: start: 19980116
  19. PLAVIX [Concomitant]
     Indication: ARTERIOSCLEROSIS CORONARY ARTERY
     Route: 048
     Dates: start: 20050724
  20. TRILEPTAL [Concomitant]
     Route: 048
     Dates: start: 20020503
  21. NEURONTIN [Concomitant]
     Indication: NEUROPATHY PERIPHERAL
     Route: 048
     Dates: start: 20070327
  22. KLONOPIN [Concomitant]
     Indication: ANXIETY
     Route: 048
     Dates: start: 20020503
  23. DEMEROL [Concomitant]
     Indication: PLEURITIC PAIN
     Route: 048
     Dates: start: 20051026
  24. ZETIA [Concomitant]
     Route: 048
     Dates: start: 20050724
  25. HYDROCHLOROTHIAZIDE [Concomitant]
     Route: 048
     Dates: start: 20020503

REACTIONS (7)
  - CARPAL TUNNEL SYNDROME [None]
  - DIABETES MELLITUS [None]
  - DIABETES MELLITUS INADEQUATE CONTROL [None]
  - NEUROPATHY PERIPHERAL [None]
  - PARAESTHESIA [None]
  - TYPE 1 DIABETES MELLITUS [None]
  - TYPE 2 DIABETES MELLITUS [None]
